FAERS Safety Report 17165414 (Version 3)
Quarter: 2020Q1

REPORT INFORMATION
  Report Type: Spontaneous
  Country: US (occurrence: US)
  Receive Date: 20191217
  Receipt Date: 20200204
  Transmission Date: 20200409
  Serious: Yes (Hospitalization)
  Sender: FDA-Public Use
  Company Number: US-PFIZER INC-2018287727

PATIENT
  Age: 88 Year
  Sex: Female
  Weight: 61.22 kg

DRUGS (7)
  1. XELJANZ XR [Suspect]
     Active Substance: TOFACITINIB CITRATE
     Indication: RHEUMATOID ARTHRITIS
     Dosage: 11 MG, DAILY
     Route: 048
     Dates: start: 20180409, end: 20180714
  2. XELJANZ XR [Suspect]
     Active Substance: TOFACITINIB CITRATE
     Dosage: 11 MG, 1X/DAY
  3. MYRBETRIQ [Concomitant]
     Active Substance: MIRABEGRON
     Indication: INCONTINENCE
     Dosage: UNK, 1X/DAY
  4. XELJANZ XR [Suspect]
     Active Substance: TOFACITINIB CITRATE
     Dosage: 11 MG, UNK
  5. LOSARTAN. [Concomitant]
     Active Substance: LOSARTAN
     Indication: HYPERTENSION
     Dosage: UNK
     Dates: start: 201909
  6. SIMVASTATIN. [Concomitant]
     Active Substance: SIMVASTATIN
     Indication: BLOOD CHOLESTEROL ABNORMAL
     Dosage: 20 MG, UNK
     Dates: start: 2010
  7. PREVACID [Concomitant]
     Active Substance: LANSOPRAZOLE
     Dosage: 15 MG, 1X/DAY
     Dates: start: 2000

REACTIONS (6)
  - Renal cyst ruptured [Recovered/Resolved]
  - Malaise [Unknown]
  - Renal cyst [Recovered/Resolved]
  - Headache [Unknown]
  - Gastric disorder [Unknown]
  - Renal disorder [Recovered/Resolved]

NARRATIVE: CASE EVENT DATE: 201909
